FAERS Safety Report 5960247-X (Version None)
Quarter: 2008Q4

REPORT INFORMATION
  Report Type: 
  Country: None (occurrence: None)
  Receive Date: 20081110
  Receipt Date: 20080708
  Transmission Date: 20090506
  Serious: No
  Sender: FDA-Public Use
  Company Number: WAES 0807USA01434

PATIENT
  Sex: Male

DRUGS (2)
  1. ZOLINZA [Suspect]
     Dosage: 200 MG/BID/PO
     Route: 048
  2. VIDAZA [Concomitant]

REACTIONS (2)
  - ABDOMINAL PAIN LOWER [None]
  - CONSTIPATION [None]
